FAERS Safety Report 11676827 (Version 1)
Quarter: 2015Q4

REPORT INFORMATION
  Report Type: Spontaneous
  Country: US (occurrence: US)
  Receive Date: 20151027
  Receipt Date: 20151027
  Transmission Date: 20160304
  Serious: No
  Sender: FDA-Public Use
  Company Number: US-ELI_LILLY_AND_COMPANY-US201008005834

PATIENT
  Age: 75 Year
  Sex: Female

DRUGS (1)
  1. FORTEO [Suspect]
     Active Substance: TERIPARATIDE
     Indication: OSTEOPOROSIS
     Dosage: 20 UG, DAILY (1/D)
     Dates: start: 20100810, end: 201009

REACTIONS (10)
  - Feeling abnormal [Recovering/Resolving]
  - Dizziness [Recovering/Resolving]
  - Gait disturbance [Recovering/Resolving]
  - Arthralgia [Recovered/Resolved]
  - Muscle spasms [Recovering/Resolving]
  - Coordination abnormal [Recovering/Resolving]
  - Confusional state [Recovering/Resolving]
  - Balance disorder [Recovering/Resolving]
  - Pain in extremity [Recovering/Resolving]
  - Activities of daily living impaired [Recovering/Resolving]

NARRATIVE: CASE EVENT DATE: 20100818
